FAERS Safety Report 21287283 (Version 2)
Quarter: 2022Q3

REPORT INFORMATION
  Report Type: Spontaneous
  Country: US (occurrence: US)
  Receive Date: 20220902
  Receipt Date: 20220902
  Transmission Date: 20221027
  Serious: No
  Sender: FDA-Public Use
  Company Number: US-Zogenix International Limited, A wholly owned subsidiary of Zogenix, Inc.-2022ZX000721

PATIENT
  Age: 29 Year
  Sex: Female

DRUGS (3)
  1. FINTEPLA [Suspect]
     Active Substance: FENFLURAMINE
     Indication: Product used for unknown indication
     Dosage: 3 AND 3 DOSE
     Route: 048
     Dates: start: 202205
  2. FINTEPLA [Suspect]
     Active Substance: FENFLURAMINE
     Dosage: 3 AND 4.5ML
     Route: 048
     Dates: start: 202206
  3. DEPAKOTE [Concomitant]
     Active Substance: DIVALPROEX SODIUM
     Indication: Product used for unknown indication
     Route: 065

REACTIONS (5)
  - Vasculitis [Not Recovered/Not Resolved]
  - Sunburn [Not Recovered/Not Resolved]
  - Rash [Not Recovered/Not Resolved]
  - Drooling [Unknown]
  - Sedation [Unknown]

NARRATIVE: CASE EVENT DATE: 20220501
